FAERS Safety Report 9014143 (Version 1)
Quarter: 2013Q1

REPORT INFORMATION
  Report Type: Spontaneous
  Country: GB (occurrence: GB)
  Receive Date: 20130115
  Receipt Date: 20130115
  Transmission Date: 20140127
  Serious: Yes (Hospitalization)
  Sender: FDA-Public Use
  Company Number: GB-TEVA-380115ISR

PATIENT
  Age: 73 Year
  Sex: Male

DRUGS (10)
  1. METRONIDAZOLE [Suspect]
     Dosage: 1200 MILLIGRAM DAILY;
     Route: 048
     Dates: start: 20110305, end: 20110306
  2. FLUCLOXACILLIN [Suspect]
     Indication: ULCER
     Dosage: 2000 MILLIGRAM DAILY;
     Route: 048
     Dates: start: 20110302, end: 20110306
  3. TEICOPLANIN [Suspect]
     Dosage: STAT
     Route: 042
     Dates: start: 20110305, end: 20110305
  4. AMOXICILLIN\CLAVULANATE POTASSIUM [Suspect]
     Indication: STREPTOCOCCAL SEPSIS
     Dosage: 1875 MILLIGRAM DAILY;
     Route: 048
     Dates: start: 20110306, end: 20110313
  5. AMOXICILLIN\CLAVULANATE POTASSIUM [Suspect]
     Dosage: 5 DOSES RECEIVED
     Route: 048
     Dates: start: 20110317, end: 20110319
  6. AMOXICILLIN\CLAVULANATE POTASSIUM [Suspect]
     Route: 042
     Dates: start: 20110329, end: 20110402
  7. AMOXICILLIN\CLAVULANATE POTASSIUM [Suspect]
     Route: 048
     Dates: start: 20110402, end: 20110405
  8. AMOXICILLIN\CLAVULANATE POTASSIUM [Suspect]
     Route: 042
     Dates: start: 20110406, end: 20110406
  9. PIPERACILLIN AND TAZOBACTAM [Suspect]
     Dosage: 13.5 GRAM DAILY;
     Route: 042
     Dates: start: 20110316, end: 20110317
  10. SULPIRIDE [Concomitant]
     Dosage: 800 MILLIGRAM DAILY;
     Route: 048

REACTIONS (4)
  - Clostridium difficile infection [Recovered/Resolved]
  - Norovirus test positive [Unknown]
  - Diarrhoea [Unknown]
  - Vomiting [Unknown]
